FAERS Safety Report 23670253 (Version 1)
Quarter: 2024Q1

REPORT INFORMATION
  Report Type: Spontaneous
  Country: BE (occurrence: BE)
  Receive Date: 20240325
  Receipt Date: 20240325
  Transmission Date: 20240410
  Serious: Yes (Other)
  Sender: FDA-Public Use
  Company Number: None

PATIENT
  Sex: Male

DRUGS (1)
  1. STELARA [Suspect]
     Active Substance: USTEKINUMAB
     Indication: Product used for unknown indication
     Dosage: DERNIERE PRISE LE 12/2/2024
     Route: 065

REACTIONS (7)
  - Blood creatinine increased [Unknown]
  - White blood cell count increased [Unknown]
  - Conjunctival hyperaemia [Unknown]
  - Blood urine present [Unknown]
  - C-reactive protein increased [Unknown]
  - Haematuria [Unknown]
  - Gingival bleeding [Unknown]
